FAERS Safety Report 21026637 (Version 6)
Quarter: 2023Q1

REPORT INFORMATION
  Report Type: Report from Study
  Country: DE (occurrence: None)
  Receive Date: 20220630
  Receipt Date: 20230106
  Transmission Date: 20230418
  Serious: Yes (Hospitalization)
  Sender: FDA-Public Use
  Company Number: DE-ROCHE-3123606

PATIENT
  Age: 62 Year
  Sex: Female
  Weight: 77 kg

DRUGS (15)
  1. ATEZOLIZUMAB [Suspect]
     Active Substance: ATEZOLIZUMAB
     Indication: Triple negative breast cancer
     Dosage: DATE OF LAST DOSE PRIOR TO SAE: 30/MAR/2022, 12/MAY/2022
     Route: 041
     Dates: start: 20220216
  2. PACLITAXEL [Suspect]
     Active Substance: PACLITAXEL
     Indication: Triple negative breast cancer
     Dosage: DATE OF LAST DOSE PRIOR TO SAE: 30/MAR/2022, 04/MAY/2022
     Route: 042
     Dates: start: 20220216
  3. CARBOPLATIN [Suspect]
     Active Substance: CARBOPLATIN
     Indication: Triple negative breast cancer
     Dosage: DATE OF LAST DOSE PRIOR TO SAE: 30/MAR/2022, 04/MAY/2022
     Route: 042
     Dates: start: 20220216
  4. EPIRUBICIN [Suspect]
     Active Substance: EPIRUBICIN
     Indication: Triple negative breast cancer
     Dosage: DATE OF LAST DOSE PRIOR TO SAE: 12/MAY/2022
     Route: 042
     Dates: start: 20220512
  5. CYCLOPHOSPHAMIDE [Suspect]
     Active Substance: CYCLOPHOSPHAMIDE
     Indication: Triple negative breast cancer
     Dosage: DATE OF LAST DOSE PRIOR TO SAE: 12/MAY/2022
     Route: 042
     Dates: start: 20220512
  6. RAMIPRIL [Concomitant]
     Active Substance: RAMIPRIL
     Dates: start: 20220201
  7. GRANISETRON [Concomitant]
     Active Substance: GRANISETRON
     Dates: start: 20220216, end: 20220504
  8. DEXAMETHASONE [Concomitant]
     Active Substance: DEXAMETHASONE
     Dates: start: 20220216
  9. DEXAMETHASONE [Concomitant]
     Active Substance: DEXAMETHASONE
     Dates: start: 20220406, end: 20220504
  10. DEXAMETHASONE [Concomitant]
     Active Substance: DEXAMETHASONE
     Dates: start: 20220512, end: 20220714
  11. CLEMASTINE [Concomitant]
     Active Substance: CLEMASTINE
     Dates: start: 20220216, end: 20220504
  12. FERINJECT [Concomitant]
     Active Substance: FERRIC CARBOXYMALTOSE
     Dates: start: 20220427, end: 20220427
  13. FERINJECT [Concomitant]
     Active Substance: FERRIC CARBOXYMALTOSE
     Dates: start: 20220504, end: 20220714
  14. AKYNZEO [Concomitant]
     Dates: start: 20220512, end: 20220714
  15. MESNA [Concomitant]
     Active Substance: MESNA
     Dates: start: 20220512, end: 20220714

REACTIONS (2)
  - Anaemia [Recovered/Resolved]
  - Neutrophil count decreased [Recovered/Resolved]

NARRATIVE: CASE EVENT DATE: 20220520
